FAERS Safety Report 6761806-7 (Version None)
Quarter: 2010Q2

REPORT INFORMATION
  Report Type: 
  Country: None (occurrence: None)
  Receive Date: 20100419
  Receipt Date: 20100407
  Transmission Date: 20101027
  Serious: Yes (Hospitalization)
  Sender: FDA-Public Use
  Company Number: AEUSA201000103

PATIENT
  Age: 43 Year
  Sex: Female
  Weight: 99.7913 kg

DRUGS (8)
  1. GAMUNEX [Suspect]
     Indication: MYASTHENIA GRAVIS
     Dosage: 50 GM;QD;IV
     Route: 042
     Dates: start: 20090201
  2. MIDRIN /00920701/ [Suspect]
     Indication: HEADACHE
     Dates: end: 20100401
  3. LASIX [Concomitant]
  4. VITAMIN B-12 [Concomitant]
  5. PREDNISONE [Concomitant]
  6. K-DUR [Concomitant]
  7. CALCIUM CARBONATE [Concomitant]
  8. OMEPRAZOLE [Concomitant]

REACTIONS (5)
  - DYSARTHRIA [None]
  - DYSPHAGIA [None]
  - HEADACHE [None]
  - HEMIPARESIS [None]
  - INFUSION RELATED REACTION [None]
